FAERS Safety Report 14360139 (Version 2)
Quarter: 2018Q1

REPORT INFORMATION
  Report Type: Report from Study
  Country: None (occurrence: CO)
  Receive Date: 20180106
  Receipt Date: 20180316
  Transmission Date: 20180509
  Serious: Yes (Other)
  Sender: FDA-Public Use
  Company Number: CO-ABBVIE-18K-036-2213774-00

PATIENT
  Sex: Female
  Weight: 47 kg

DRUGS (2)
  1. PREDNISOLONE. [Concomitant]
     Active Substance: PREDNISOLONE
     Indication: PRODUCT USED FOR UNKNOWN INDICATION
  2. HUMIRA [Suspect]
     Active Substance: ADALIMUMAB
     Indication: COLITIS ULCERATIVE
     Route: 058
     Dates: start: 20111216, end: 20180105

REACTIONS (5)
  - Pseudopolyp [Recovered/Resolved]
  - Anorectal disorder [Recovered/Resolved]
  - Colitis [Recovered/Resolved]
  - Change of bowel habit [Recovered/Resolved]
  - Gastrointestinal mucosal disorder [Recovered/Resolved]
